FAERS Safety Report 17007870 (Version 1)
Quarter: 2019Q4

REPORT INFORMATION
  Report Type: Spontaneous
  Country: US (occurrence: US)
  Receive Date: 20191108
  Receipt Date: 20191108
  Transmission Date: 20200122
  Serious: No
  Sender: FDA-Public Use
  Company Number: US-TEVA-2019-US-1132910

PATIENT
  Age: 10 Year
  Sex: Female

DRUGS (1)
  1. AZITHROMYCIN TABLETS USP [Suspect]
     Active Substance: AZITHROMYCIN ANHYDROUS
     Indication: EYELID INFECTION
     Dosage: 500 MG ON THE1ST DAY ON 25-OCT-2019 AND 250 MG THE FOLLOWING TWO DAYS ON 29-OCT-2019 AND 30-OCT-2019
     Route: 065
     Dates: start: 20191028

REACTIONS (2)
  - Diarrhoea [Unknown]
  - Abdominal pain [Unknown]

NARRATIVE: CASE EVENT DATE: 20191030
